FAERS Safety Report 7385205-2 (Version None)
Quarter: 2011Q1

REPORT INFORMATION
  Report Type: 
  Country: None (occurrence: None)
  Receive Date: 20110330
  Receipt Date: 20110110
  Transmission Date: 20110831
  Serious: No
  Sender: FDA-Public Use
  Company Number: US-MYLANLABS-2011S1000882

PATIENT
  Age: 63 Year
  Sex: Male

DRUGS (1)
  1. NIFEDIPINE [Suspect]
     Indication: BLOOD PRESSURE INCREASED
     Route: 048
     Dates: start: 20101223, end: 20100107

REACTIONS (3)
  - MUSCULOSKELETAL STIFFNESS [None]
  - GOUT [None]
  - MYALGIA [None]
